FAERS Safety Report 5074473-8 (Version None)
Quarter: 2006Q3

REPORT INFORMATION
  Report Type: 
  Country: None (occurrence: None)
  Receive Date: 20060804
  Receipt Date: 20060728
  Transmission Date: 20061208
  Serious: Yes (Death)
  Sender: FDA-Public Use
  Company Number: 0607-490

PATIENT
  Sex: Male
  Weight: 1.07 kg

DRUGS (1)
  1. CUROSURF [Suspect]
     Indication: RESPIRATORY DISTRESS
     Dosage: 200 MG/KG

REACTIONS (16)
  - ADRENAL CORTICAL INSUFFICIENCY [None]
  - CAPILLARY LEAK SYNDROME [None]
  - CEREBRAL HAEMORRHAGE NEONATAL [None]
  - DISSEMINATED INTRAVASCULAR COAGULATION [None]
  - FLATULENCE [None]
  - GENERALISED OEDEMA [None]
  - HAEMORRHAGE NEONATAL [None]
  - INTESTINAL ISCHAEMIA [None]
  - NEONATAL HYPOTENSION [None]
  - NEONATAL RESPIRATORY DISTRESS SYNDROME [None]
  - NEONATAL RESPIRATORY FAILURE [None]
  - PROCEDURAL COMPLICATION [None]
  - PROCEDURAL HYPOTENSION [None]
  - RENAL FAILURE NEONATAL [None]
  - THERAPY NON-RESPONDER [None]
  - WEIGHT INCREASED [None]
